FAERS Safety Report 14433166 (Version 1)
Quarter: 2018Q1

REPORT INFORMATION
  Report Type: Spontaneous
  Country: FR (occurrence: FR)
  Receive Date: 20180124
  Receipt Date: 20180124
  Transmission Date: 20180509
  Serious: Yes (Other)
  Sender: FDA-Public Use
  Company Number: FR-ALLERGAN-1803393US

PATIENT
  Age: 44 Year
  Sex: Female
  Weight: 65 kg

DRUGS (1)
  1. PYLERA [Suspect]
     Active Substance: BISMUTH SUBCITRATE POTASSIUM\METRONIDAZOLE\TETRACYCLINE HYDROCHLORIDE
     Indication: HELICOBACTER INFECTION
     Dosage: 12 DF, QD
     Route: 048
     Dates: start: 20171227

REACTIONS (8)
  - Suicidal ideation [Unknown]
  - Fatigue [Unknown]
  - Food aversion [Unknown]
  - Nausea [Unknown]
  - Faeces discoloured [Unknown]
  - Vomiting [Unknown]
  - General physical health deterioration [Unknown]
  - Chromaturia [Unknown]
